FAERS Safety Report 20642760 (Version 1)
Quarter: 2022Q1

REPORT INFORMATION
  Report Type: Spontaneous
  Country: US (occurrence: US)
  Receive Date: 20220328
  Receipt Date: 20220328
  Transmission Date: 20220423
  Serious: Yes (Hospitalization)
  Sender: FDA-Public Use
  Company Number: US-ELI_LILLY_AND_COMPANY-US202203008282

PATIENT
  Sex: Female

DRUGS (3)
  1. HUMULIN N [Suspect]
     Active Substance: INSULIN HUMAN
     Indication: Type 2 diabetes mellitus
     Dosage: UNK UNK, UNKNOWN
     Route: 058
  2. HUMULIN 70/30 [Suspect]
     Active Substance: INSULIN HUMAN
     Indication: Type 2 diabetes mellitus
     Dosage: 1 U, BID
     Route: 065
     Dates: start: 2017
  3. CAPTOPRIL [Concomitant]
     Active Substance: CAPTOPRIL
     Indication: Blood pressure management

REACTIONS (5)
  - Accident [Unknown]
  - Cough [Unknown]
  - Dyspnoea [Unknown]
  - Tuberculosis [Unknown]
  - Pneumonia [Unknown]

NARRATIVE: CASE EVENT DATE: 20210101
